FAERS Safety Report 24416290 (Version 1)
Quarter: 2024Q4

REPORT INFORMATION
  Report Type: Spontaneous
  Country: JP (occurrence: JP)
  Receive Date: 20241009
  Receipt Date: 20241009
  Transmission Date: 20250114
  Serious: Yes (Hospitalization, Other)
  Sender: ASTELLAS
  Company Number: JP-ASTELLAS-2024-AER-010404

PATIENT

DRUGS (35)
  1. TACROLIMUS [Suspect]
     Active Substance: TACROLIMUS
     Indication: Lupus nephritis
     Route: 064
  2. PREDNISOLONE [Concomitant]
     Active Substance: PREDNISOLONE
     Indication: Systemic lupus erythematosus
     Route: 064
  3. PREDNISOLONE [Concomitant]
     Active Substance: PREDNISOLONE
     Indication: Lupus nephritis
     Route: 064
  4. PREDNISOLONE [Concomitant]
     Active Substance: PREDNISOLONE
     Route: 064
  5. PREDNISOLONE [Concomitant]
     Active Substance: PREDNISOLONE
     Route: 064
  6. PREDNISOLONE [Concomitant]
     Active Substance: PREDNISOLONE
     Route: 064
  7. PREDNISOLONE [Concomitant]
     Active Substance: PREDNISOLONE
     Route: 064
  8. PREDNISOLONE [Concomitant]
     Active Substance: PREDNISOLONE
     Route: 064
  9. PREDNISOLONE [Concomitant]
     Active Substance: PREDNISOLONE
     Route: 064
  10. PREDNISOLONE [Concomitant]
     Active Substance: PREDNISOLONE
     Route: 064
  11. PREDNISOLONE [Concomitant]
     Active Substance: PREDNISOLONE
     Route: 064
  12. PREDNISOLONE [Concomitant]
     Active Substance: PREDNISOLONE
     Route: 064
  13. PREDNISOLONE [Concomitant]
     Active Substance: PREDNISOLONE
     Route: 064
  14. METHYLPREDNISOLONE [Concomitant]
     Active Substance: METHYLPREDNISOLONE
     Indication: Lupus nephritis
     Route: 064
  15. METHYLPREDNISOLONE [Concomitant]
     Active Substance: METHYLPREDNISOLONE
     Route: 064
  16. METHYLPREDNISOLONE [Concomitant]
     Active Substance: METHYLPREDNISOLONE
     Route: 064
  17. METHYLPREDNISOLONE [Concomitant]
     Active Substance: METHYLPREDNISOLONE
     Route: 064
  18. MYCOPHENOLATE MOFETIL [Concomitant]
     Active Substance: MYCOPHENOLATE MOFETIL
     Indication: Lupus nephritis
     Route: 064
  19. MYCOPHENOLATE MOFETIL [Concomitant]
     Active Substance: MYCOPHENOLATE MOFETIL
     Route: 064
  20. HYDROXYCHLOROQUINE [Concomitant]
     Active Substance: HYDROXYCHLOROQUINE
     Indication: Lupus nephritis
     Route: 064
  21. AZATHIOPRINE [Concomitant]
     Active Substance: AZATHIOPRINE
     Indication: Lupus nephritis
     Route: 064
  22. ASPIRIN [Concomitant]
     Active Substance: ASPIRIN
     Indication: Thrombosis prophylaxis
     Route: 064
  23. HEPARIN CALCIUM [Concomitant]
     Active Substance: HEPARIN CALCIUM
     Indication: Product used for unknown indication
     Dosage: 5000U, TWICE /DAY
     Route: 064
  24. METHYLDOPA [Concomitant]
     Active Substance: METHYLDOPA
     Indication: Blood pressure increased
     Route: 064
  25. METHYLDOPA [Concomitant]
     Active Substance: METHYLDOPA
     Route: 064
  26. METHYLDOPA [Concomitant]
     Active Substance: METHYLDOPA
     Route: 064
  27. NIFEDIPINE [Concomitant]
     Active Substance: NIFEDIPINE
     Indication: Blood pressure increased
     Route: 064
  28. NIFEDIPINE [Concomitant]
     Active Substance: NIFEDIPINE
     Route: 064
  29. NIFEDIPINE [Concomitant]
     Active Substance: NIFEDIPINE
     Route: 064
  30. ESAXERENONE [Concomitant]
     Active Substance: ESAXERENONE
     Indication: Blood pressure increased
     Route: 064
  31. IMMUNOGLOBULIN 5 TRCS [Concomitant]
     Indication: Product used for unknown indication
     Dosage: HIGH DOSE ADMINISTRATION
     Route: 064
  32. DIPYRIDAMOLE [Concomitant]
     Active Substance: DIPYRIDAMOLE
     Indication: Thrombosis prophylaxis
     Route: 064
  33. DIPYRIDAMOLE [Concomitant]
     Active Substance: DIPYRIDAMOLE
     Indication: Protein urine
  34. VALGANCICLOVIR [Concomitant]
     Active Substance: VALGANCICLOVIR
     Indication: Cytomegalovirus infection reactivation
     Route: 064
  35. BETAMETHASONE [Concomitant]
     Active Substance: BETAMETHASONE
     Indication: Product used for unknown indication
     Route: 064

REACTIONS (3)
  - Low birth weight baby [Unknown]
  - Premature baby [Unknown]
  - Foetal exposure during pregnancy [Unknown]
